FAERS Safety Report 9125153 (Version 1)
Quarter: 2013Q1

REPORT INFORMATION
  Report Type: Spontaneous
  Country: US (occurrence: US)
  Receive Date: 20130117
  Receipt Date: 20130117
  Transmission Date: 20140127
  Serious: Yes (Death, Other)
  Sender: FDA-Public Use
  Company Number: US-UCBSA-075143

PATIENT
  Age: 56 Year
  Sex: Female

DRUGS (5)
  1. ALPRAZOLAM [Suspect]
  2. FENTANYL [Suspect]
  3. DIAZEPAM [Suspect]
  4. TRAMADOL [Suspect]
  5. CYCLOBENZAPRINE [Suspect]

REACTIONS (1)
  - Drug abuse [Fatal]
